FAERS Safety Report 15639019 (Version 1)
Quarter: 2018Q4

REPORT INFORMATION
  Report Type: Spontaneous
  Country: US (occurrence: US)
  Receive Date: 20181120
  Receipt Date: 20181120
  Transmission Date: 20190205
  Serious: No
  Sender: FDA-Public Use
  Company Number: US-JNJFOC-20180301859

PATIENT
  Age: 78 Year
  Sex: Female

DRUGS (3)
  1. SYNTHROID [Concomitant]
     Active Substance: LEVOTHYROXINE SODIUM
     Indication: HYPOTHYROIDISM
     Route: 065
  2. IMBRUVICA [Suspect]
     Active Substance: IBRUTINIB
     Indication: CHRONIC LYMPHOCYTIC LEUKAEMIA
     Route: 048
     Dates: start: 20160804
  3. IDELALISIB [Suspect]
     Active Substance: IDELALISIB
     Indication: PRODUCT USED FOR UNKNOWN INDICATION
     Route: 065

REACTIONS (8)
  - Abdominal rigidity [Not Recovered/Not Resolved]
  - Nail disorder [Recovering/Resolving]
  - Thyroid function test abnormal [Unknown]
  - Muscle spasms [Not Recovered/Not Resolved]
  - Muscular weakness [Unknown]
  - Onychoclasis [Recovering/Resolving]
  - Nail cuticle fissure [Unknown]
  - Hypertension [Unknown]

NARRATIVE: CASE EVENT DATE: 2017
